FAERS Safety Report 4746588-2 (Version None)
Quarter: 2005Q3

REPORT INFORMATION
  Report Type: 
  Country: None (occurrence: None)
  Receive Date: 20050815
  Receipt Date: 20050802
  Transmission Date: 20060218
  Serious: Yes (Other)
  Sender: FDA-Public Use
  Company Number: 2005109948

PATIENT
  Age: 34 Year
  Sex: Female
  Weight: 49.8957 kg

DRUGS (1)
  1. UNISOM [Suspect]
     Indication: SLEEP DISORDER
     Dosage: 38 TABLETS IN 2 DAYS, ORAL
     Route: 048
     Dates: start: 20050801, end: 20050802

REACTIONS (3)
  - GAIT DISTURBANCE [None]
  - MYDRIASIS [None]
  - OVERDOSE [None]
